FAERS Safety Report 17736362 (Version 1)
Quarter: 2020Q2

REPORT INFORMATION
  Report Type: Report from Study
  Country: BR (occurrence: BR)
  Receive Date: 20200501
  Receipt Date: 20200501
  Transmission Date: 20200714
  Serious: Yes (Other)
  Sender: FDA-Public Use
  Company Number: PHHY2014BR158188

PATIENT
  Age: 63 Year
  Sex: Female
  Weight: 60 kg

DRUGS (3)
  1. FORASEQ [Suspect]
     Active Substance: BUDESONIDE\FORMOTEROL FUMARATE
     Dosage: 1 DF (12+400 MCG), QD (IN THE MORNING)
     Route: 065
  2. FORASEQ [Suspect]
     Active Substance: BUDESONIDE\FORMOTEROL FUMARATE
     Indication: ASTHMA
     Dosage: 2 DF, 400 MG (2 CAPSULES (1 CAPSULE AFTER THE OTHER)
     Route: 065
  3. FORASEQ [Suspect]
     Active Substance: BUDESONIDE\FORMOTEROL FUMARATE
     Dosage: UNK, (WHEN HAS OR THINKS THA WILL HAVE CRISIS)
     Route: 055
     Dates: end: 20200420

REACTIONS (10)
  - Fatigue [Recovered/Resolved with Sequelae]
  - Cough [Recovered/Resolved with Sequelae]
  - Dysphonia [Recovered/Resolved]
  - Expired product administered [Not Recovered/Not Resolved]
  - Multiple allergies [Recovered/Resolved with Sequelae]
  - Asthmatic crisis [Recovered/Resolved with Sequelae]
  - Wheezing [Recovered/Resolved with Sequelae]
  - Sneezing [Recovered/Resolved with Sequelae]
  - Fear [Unknown]
  - Dyspnoea [Recovered/Resolved with Sequelae]

NARRATIVE: CASE EVENT DATE: 20200419
